FAERS Safety Report 7850460-9 (Version None)
Quarter: 2011Q4

REPORT INFORMATION
  Report Type: 
  Country: None (occurrence: None)
  Receive Date: 20111026
  Receipt Date: 20111026
  Transmission Date: 20120403
  Serious: Yes (Other)
  Sender: FDA-Public Use
  Company Number: None

PATIENT
  Age: 13 Year
  Sex: Female
  Weight: 42.5 kg

DRUGS (8)
  1. PREDNISONE [Concomitant]
     Route: 048
  2. VALCYTE [Concomitant]
     Route: 048
  3. BACTRIM DS [Concomitant]
     Route: 048
  4. ASPIRIN [Concomitant]
     Route: 048
  5. TACROLIMUS [Suspect]
     Indication: RENAL TRANSPLANT
     Dosage: 6MG
     Route: 048
     Dates: start: 20111005, end: 20111007
  6. MYCOPHENOLATE MOFETIL (CELLCEPT) [Concomitant]
     Route: 048
  7. AMLODIPINE [Concomitant]
     Route: 048
  8. NYSTATIN SUSPENSION 500,000UNITS/5ML [Concomitant]
     Route: 048

REACTIONS (3)
  - DRUG LEVEL DECREASED [None]
  - PRODUCT SUBSTITUTION ISSUE [None]
  - PRODUCT QUALITY ISSUE [None]
